FAERS Safety Report 6918998-6 (Version None)
Quarter: 2010Q3

REPORT INFORMATION
  Report Type: 
  Country: None (occurrence: None)
  Receive Date: 20100811
  Receipt Date: 20100728
  Transmission Date: 20110219
  Serious: Yes (Life-Threatening, Other)
  Sender: FDA-Public Use
  Company Number: GB-ELI_LILLY_AND_COMPANY-GB201007007110

PATIENT
  Age: 35 Year
  Sex: Female

DRUGS (1)
  1. DULOXETINE HYDROCHLORIDE [Suspect]
     Indication: NEURALGIA
     Dosage: 60 MG, UNKNOWN
     Route: 048
     Dates: start: 20100706, end: 20100706

REACTIONS (6)
  - ANAPHYLACTIC REACTION [None]
  - OFF LABEL USE [None]
  - STOMATITIS [None]
  - TACHYCARDIA [None]
  - TEMPERATURE REGULATION DISORDER [None]
  - TRISMUS [None]
